FAERS Safety Report 6912345-1 (Version None)
Quarter: 2010Q3

REPORT INFORMATION
  Report Type: 
  Country: None (occurrence: None)
  Receive Date: 20100806
  Receipt Date: 20100803
  Transmission Date: 20110219
  Serious: Yes (Other)
  Sender: FDA-Public Use
  Company Number: DK-MERCK-1005DNK00007

PATIENT
  Age: 33 Year
  Sex: Male

DRUGS (1)
  1. ZOCOR [Suspect]
     Indication: HYPERCHOLESTEROLAEMIA
     Route: 048
     Dates: start: 20091118, end: 20100301

REACTIONS (2)
  - DEPRESSION [None]
  - SUICIDAL IDEATION [None]
